FAERS Safety Report 5483274-8 (Version None)
Quarter: 2007Q4

REPORT INFORMATION
  Report Type: 
  Country: None (occurrence: None)
  Receive Date: 20071012
  Receipt Date: 20071003
  Transmission Date: 20080405
  Serious: Yes (Hospitalization)
  Sender: FDA-Public Use
  Company Number: PHHO2007MY16001

PATIENT
  Age: 67 Year
  Sex: Male
  Weight: 79 kg

DRUGS (9)
  1. NATEGLINIDE [Suspect]
     Indication: GLUCOSE TOLERANCE IMPAIRED
     Dosage: 60 MG, UNK
     Route: 048
  2. VALSARTAN [Suspect]
     Indication: CARDIOVASCULAR DISORDER
     Dosage: 160 MG
     Route: 048
  3. TICLID [Concomitant]
     Dosage: 250 MG / DAY
     Route: 048
     Dates: start: 20070910
  4. PLAVIX [Concomitant]
     Dosage: 75 MG / DAY
     Route: 048
     Dates: start: 20070216
  5. BETALOC [Concomitant]
     Dosage: 50 MG / DAY
     Route: 048
     Dates: start: 20050430
  6. LOVASTATIN [Concomitant]
     Dosage: 40 MG / DAY
     Route: 048
     Dates: start: 20050217
  7. VASTAREL [Concomitant]
     Dosage: 120 MG / DAY
     Route: 048
     Dates: start: 20070216
  8. ISORDIL [Concomitant]
     Dosage: 10 MG / DAY
     Route: 048
     Dates: start: 20070516
  9. ISOSORBIDE MONONITRATE [Concomitant]

REACTIONS (5)
  - ANGINA PECTORIS [None]
  - CHEST DISCOMFORT [None]
  - DIARRHOEA [None]
  - GOUTY ARTHRITIS [None]
  - REFLUX OESOPHAGITIS [None]
